FAERS Safety Report 19186496 (Version 1)
Quarter: 2021Q2

REPORT INFORMATION
  Report Type: Spontaneous
  Country: FR (occurrence: FR)
  Receive Date: 20210427
  Receipt Date: 20210427
  Transmission Date: 20210717
  Serious: Yes (Death, Hospitalization)
  Sender: FDA-Public Use
  Company Number: FR-TEVA-2021-FR-1903932

PATIENT
  Age: 73 Year
  Sex: Female
  Weight: 59.3 kg

DRUGS (14)
  1. PIPERACILLINE BASE [Suspect]
     Active Substance: PIPERACILLIN SODIUM
     Indication: LUNG DISORDER
     Dosage: 4 GRAM
     Route: 042
     Dates: start: 20190420, end: 20190427
  2. MODOPAR 125 (100 MG/25 MG), GELULE [Concomitant]
     Active Substance: BENSERAZIDE HYDROCHLORIDE\LEVODOPA
     Route: 048
  3. CIFLOX 500 MG, COMPRIME PELLICULE SECABLE [Suspect]
     Active Substance: CIPROFLOXACIN HYDROCHLORIDE
     Indication: LUNG DISORDER
     Dosage: 2 DOSAGE FORMS
     Route: 048
     Dates: start: 20190421, end: 20190428
  4. SPASFON [Concomitant]
     Dosage: 3 DOSAGE FORMS
     Route: 048
  5. CLOZAPINE. [Suspect]
     Active Substance: CLOZAPINE
     Indication: HALLUCINATION
     Dosage: 12.5 MG
     Route: 048
     Dates: start: 201710
  6. LEVODOPA CARBIDOPA TEVA [Concomitant]
     Active Substance: CARBIDOPA\LEVODOPA
     Dosage: 1 DOSAGE FORMS
     Route: 048
  7. XANAX [Concomitant]
     Active Substance: ALPRAZOLAM
     Dosage: 2  DOSAGE FORMS
     Route: 048
  8. DUODOPA, GEL INTESTINAL [Concomitant]
     Dosage: 6 ML
     Route: 050
     Dates: start: 20190420
  9. DAFALGAN ADULTES 600 MG, SUPPOSITOIRE [Concomitant]
     Route: 054
  10. VALIUM [Concomitant]
     Active Substance: DIAZEPAM
     Dosage: 1 DOSAGE FORMS
     Route: 048
     Dates: start: 20190418
  11. TAZOBACTAM [Suspect]
     Active Substance: TAZOBACTAM
     Indication: LUNG DISORDER
     Dosage: 500 MG
     Route: 042
     Dates: start: 20190420, end: 20190427
  12. ALPRAZOLAM. [Concomitant]
     Active Substance: ALPRAZOLAM
     Dosage: 1.5 DOSAGE FORMS
     Route: 048
     Dates: start: 20190418
  13. SCOPOLAMINE [Concomitant]
     Active Substance: SCOPOLAMINE
     Dosage: 3 DOSAGE FORMS
     Route: 003
     Dates: start: 20190420
  14. PHOSPHONEUROS, SOLUTION BUVABLE EN GOUTTES [Concomitant]
     Active Substance: CALCIUM PHOSPHATE, DIBASIC, ANHYDROUS\MAGNESIUM GLYCEROPHOSPHATE\PHOSPHORIC ACID\SODIUM PHOSPHATE, DIBASIC
     Dosage: 100 GTT
     Route: 048

REACTIONS (3)
  - Leukopenia [Fatal]
  - Anaemia [Fatal]
  - Thrombocytopenia [Fatal]

NARRATIVE: CASE EVENT DATE: 20190423
